FAERS Safety Report 5434308-8 (Version None)
Quarter: 2007Q3

REPORT INFORMATION
  Report Type: 
  Country: None (occurrence: None)
  Receive Date: 20070831
  Receipt Date: 20070821
  Transmission Date: 20080115
  Serious: Yes (Other)
  Sender: FDA-Public Use
  Company Number: US-TYCO HEALTHCARE/MALLINCKRODT-T200700968

PATIENT

DRUGS (5)
  1. METHADONE HCL [Suspect]
     Indication: PAIN
     Dosage: 15 MG, TID
     Route: 048
     Dates: start: 20070501, end: 20070816
  2. ZYRTEC [Concomitant]
     Indication: HYPERSENSITIVITY
     Route: 048
  3. CELEBREX [Concomitant]
     Indication: ARTHRALGIA
     Route: 048
  4. OXYCODONE HCL [Concomitant]
     Indication: BREAKTHROUGH PAIN
     Dosage: 5 MG, PRN
     Route: 048
     Dates: end: 20070801
  5. HYDROCODONE BITARTRATE [Concomitant]
     Indication: BREAKTHROUGH PAIN
     Dosage: UNK, PRN
     Route: 048
     Dates: start: 20070801

REACTIONS (5)
  - DYSPNOEA [None]
  - FEELING ABNORMAL [None]
  - FLUID RETENTION [None]
  - PAIN [None]
  - WEIGHT INCREASED [None]
